FAERS Safety Report 8232636-4 (Version None)
Quarter: 2012Q1

REPORT INFORMATION
  Report Type: 
  Country: None (occurrence: None)
  Receive Date: 20120323
  Receipt Date: 20120316
  Transmission Date: 20120608
  Serious: Yes (Other)
  Sender: FDA-Public Use
  Company Number: US-MUTUAL PHARMACEUTICAL COMPANY, INC.-CLHC20120022

PATIENT
  Age: 47 Year
  Sex: Female

DRUGS (4)
  1. ALLOPURINOL [Suspect]
     Indication: PAIN IN EXTREMITY
     Route: 065
  2. ALLOPURINOL [Suspect]
     Indication: BLOOD URIC ACID INCREASED
  3. COLCHICINE [Suspect]
     Indication: PAIN IN EXTREMITY
     Route: 065
  4. COLCHICINE [Suspect]
     Indication: BLOOD URIC ACID INCREASED
     Route: 065

REACTIONS (1)
  - GLOMERULONEPHRITIS [None]
